FAERS Safety Report 6972500-1 (Version None)
Quarter: 2010Q3

REPORT INFORMATION
  Report Type: 
  Country: None (occurrence: None)
  Receive Date: 20100907
  Receipt Date: 20100826
  Transmission Date: 20110219
  Serious: Yes (Hospitalization)
  Sender: FDA-Public Use
  Company Number: 2010AC000497

PATIENT
  Age: 84 Year
  Sex: Female

DRUGS (5)
  1. DIGOXIN [Suspect]
     Indication: ATRIAL FIBRILLATION
     Dosage: 0.125 MG;QD;PO
     Route: 048
     Dates: end: 20100813
  2. FUROSEMIDE [Concomitant]
  3. PREGABALIN [Concomitant]
  4. SIMVASTATIN [Concomitant]
  5. RABEPRAZOLE SODIUM [Concomitant]

REACTIONS (6)
  - BRADYCARDIA [None]
  - CONFUSIONAL STATE [None]
  - DYSARTHRIA [None]
  - FALL [None]
  - HEAD INJURY [None]
  - SYNCOPE [None]
